FAERS Safety Report 7924223-X (Version None)
Quarter: 2011Q4

REPORT INFORMATION
  Report Type: 
  Country: None (occurrence: None)
  Receive Date: 20111117
  Receipt Date: 20110215
  Transmission Date: 20120403
  Serious: No
  Sender: FDA-Public Use
  Company Number: US-AMGEN-USASP2011008883

PATIENT
  Sex: Female

DRUGS (1)
  1. ENBREL [Suspect]
     Indication: RHEUMATOID ARTHRITIS
     Dosage: 50 MG, QWK
     Dates: start: 20101018, end: 20110207

REACTIONS (7)
  - RASH ERYTHEMATOUS [None]
  - DRY SKIN [None]
  - FATIGUE [None]
  - EAR PAIN [None]
  - HERPES ZOSTER [None]
  - HYPERSOMNIA [None]
  - PAIN IN EXTREMITY [None]
